FAERS Safety Report 9580687 (Version 2)
Quarter: 2013Q4

REPORT INFORMATION
  Report Type: Spontaneous
  Country: FR (occurrence: FR)
  Receive Date: 20131002
  Receipt Date: 20131107
  Transmission Date: 20140711
  Serious: Yes (Hospitalization)
  Sender: FDA-Public Use
  Company Number: FR-ABBVIE-13P-056-1152044-00

PATIENT
  Age: 46 Year
  Sex: Male

DRUGS (2)
  1. HUMIRA [Suspect]
     Indication: PSORIASIS
     Route: 058
     Dates: start: 201304, end: 201307
  2. HUMIRA [Suspect]
     Route: 058
     Dates: start: 201307, end: 20130909

REACTIONS (2)
  - Suicide attempt [Recovered/Resolved]
  - Condition aggravated [Not Recovered/Not Resolved]
